FAERS Safety Report 10975176 (Version 1)
Quarter: 2015Q1

REPORT INFORMATION
  Report Type: Spontaneous
  Country: US (occurrence: None)
  Receive Date: 20150226
  Receipt Date: 20150226
  Transmission Date: 20150721
  Serious: No
  Sender: FDA-Public Use
  Company Number: TPA2010A02672

PATIENT
  Age: 78 Year
  Sex: Male
  Weight: 92 kg

DRUGS (6)
  1. DILTIAZEM [Concomitant]
     Active Substance: DILTIAZEM
  2. NASONEX [Concomitant]
     Active Substance: MOMETASONE FUROATE
  3. PRILOSEC (OMEPRAZOLE) [Concomitant]
     Active Substance: OMEPRAZOLE MAGNESIUM
  4. ULORIC [Suspect]
     Active Substance: FEBUXOSTAT
     Indication: GOUT
     Route: 048
     Dates: start: 201004, end: 20100503
  5. INDOMETHACIN. [Concomitant]
     Active Substance: INDOMETHACIN
  6. COZAAR (LOSARTAN POTASSIUM) [Concomitant]

REACTIONS (4)
  - Condition aggravated [None]
  - Gout [None]
  - Dizziness [None]
  - Nausea [None]

NARRATIVE: CASE EVENT DATE: 201004
